FAERS Safety Report 10056650 (Version 2)
Quarter: 2014Q2

REPORT INFORMATION
  Report Type: Spontaneous
  Country: DE (occurrence: DE)
  Receive Date: 20140403
  Receipt Date: 20140415
  Transmission Date: 20141212
  Serious: Yes (Hospitalization)
  Sender: FDA-Public Use
  Company Number: DE-AMGEN-DEUSP2014022466

PATIENT
  Age: 80 Year
  Sex: Female
  Weight: 77 kg

DRUGS (7)
  1. PROLIA [Suspect]
     Indication: OSTEOPOROSIS POSTMENOPAUSAL
     Dosage: 60 MG, Q6MO
     Route: 058
     Dates: start: 20130115
  2. TORASEMID [Concomitant]
     Dosage: 10 UNK, UNK
     Route: 048
  3. PROTAPHANE [Concomitant]
     Route: 058
  4. NOVORAPID [Concomitant]
     Route: 058
  5. PANTOPRAZOL [Concomitant]
     Dosage: 20 UNK, UNK
     Route: 048
  6. AMLODIPIN                          /00972401/ [Concomitant]
     Dosage: 5 UNK, UNK
     Route: 048
  7. BISOPROLOL [Concomitant]
     Route: 048

REACTIONS (1)
  - Skin infection [Unknown]
